FAERS Safety Report 15265300 (Version 2)
Quarter: 2018Q4

REPORT INFORMATION
  Report Type: Spontaneous
  Country: US (occurrence: US)
  Receive Date: 20180810
  Receipt Date: 20180821
  Transmission Date: 20190204
  Serious: No
  Sender: FDA-Public Use
  Company Number: US-009507513-1807USA007636

PATIENT
  Sex: Female
  Weight: 58 kg

DRUGS (2)
  1. BETAMETHASONE DIPROPIONATE (+) SALICYLIC ACID [Suspect]
     Active Substance: BETAMETHASONE DIPROPIONATE\SALICYLIC ACID
     Indication: THERAPEUTIC SKIN CARE TOPICAL
     Dosage: 1 DF, BID
     Route: 061
     Dates: start: 20180706, end: 20180709
  2. BUPROPION. [Concomitant]
     Active Substance: BUPROPION

REACTIONS (2)
  - Application site discolouration [Unknown]
  - Application site pain [Unknown]
